FAERS Safety Report 9419022 (Version 3)
Quarter: 2016Q3

REPORT INFORMATION
  Report Type: Spontaneous
  Country: DE (occurrence: DE)
  Receive Date: 20130725
  Receipt Date: 20160902
  Transmission Date: 20161109
  Serious: Yes (Other)
  Sender: FDA-Public Use
  Company Number: PHHY2013DE077833

PATIENT
  Sex: Male
  Weight: 92 kg

DRUGS (5)
  1. EXJADE [Suspect]
     Active Substance: DEFERASIROX
     Indication: MYELODYSPLASTIC SYNDROME
     Dosage: 6 DF (30 MG/KG), QD
     Route: 065
     Dates: start: 200606, end: 201608
  2. NEXIAM [Concomitant]
     Active Substance: ESOMEPRAZOLE
     Indication: GASTRITIS
     Dosage: 40 MG, DAILY
     Dates: start: 2004
  3. ACETYLSALICYLIC ACID [Concomitant]
     Active Substance: ASPIRIN
     Dosage: 100 MG, DAILY
  4. RAMIPRIL. [Concomitant]
     Active Substance: RAMIPRIL
     Indication: HYPERTENSION
     Dosage: 10 MG, DAILY
     Dates: start: 20130715
  5. TORASEMIDE [Concomitant]
     Active Substance: TORSEMIDE
     Indication: HYPERTENSION
     Dosage: 10 MG, DAILY
     Route: 048
     Dates: start: 20130715

REACTIONS (8)
  - Cardiac hypertrophy [Not Recovered/Not Resolved]
  - Vein disorder [Not Recovered/Not Resolved]
  - Diabetes mellitus [Recovering/Resolving]
  - Diarrhoea [Unknown]
  - Albumin urine present [Unknown]
  - Ventricular hypertrophy [Not Recovered/Not Resolved]
  - Protein total increased [Unknown]
  - Glomerular filtration rate decreased [Unknown]

NARRATIVE: CASE EVENT DATE: 20130409
